FAERS Safety Report 8110065-1 (Version None)
Quarter: 2012Q1

REPORT INFORMATION
  Report Type: 
  Country: None (occurrence: None)
  Receive Date: 20120202
  Receipt Date: 20120124
  Transmission Date: 20120608
  Serious: No
  Sender: FDA-Public Use
  Company Number: US-AMGEN-USASP2012004956

PATIENT
  Age: 56 Year
  Sex: Female

DRUGS (2)
  1. ENBREL [Suspect]
     Indication: RHEUMATOID ARTHRITIS
     Dosage: 50 MG, QWK
     Dates: start: 20110623
  2. METHOTREXATE [Concomitant]
     Dosage: 8 MG, UNK
     Dates: start: 20110601

REACTIONS (4)
  - RESPIRATORY TRACT CONGESTION [None]
  - COUGH [None]
  - RHEUMATOID ARTHRITIS [None]
  - OROPHARYNGEAL PAIN [None]
